FAERS Safety Report 7948191-X (Version None)
Quarter: 2011Q4

REPORT INFORMATION
  Report Type: 
  Country: None (occurrence: None)
  Receive Date: 20111130
  Receipt Date: 20111121
  Transmission Date: 20120403
  Serious: Yes (Death)
  Sender: FDA-Public Use
  Company Number: US-AMGEN-USASP2011061658

PATIENT
  Age: 35 Year
  Sex: Male

DRUGS (3)
  1. PLATELETS [Concomitant]
  2. NPLATE [Suspect]
     Indication: THROMBOCYTOPENIA
     Dosage: 250 MUG, UNK
     Dates: start: 20110519, end: 20110721
  3. CORTICOSTEROIDS [Concomitant]
     Indication: THROMBOCYTOPENIA

REACTIONS (1)
  - POST PROCEDURAL INFECTION [None]
